FAERS Safety Report 6203229-5 (Version None)
Quarter: 2009Q2

REPORT INFORMATION
  Report Type: 
  Country: None (occurrence: None)
  Receive Date: 20090521
  Receipt Date: 20090505
  Transmission Date: 20091009
  Serious: Yes (Hospitalization)
  Sender: FDA-Public Use
  Company Number: 000815

PATIENT
  Sex: Female

DRUGS (6)
  1. OMEPRAZOLE [Suspect]
     Dosage: (ORAL)
     Route: 048
  2. SERETIDE  /01420901/ (SERETIDE) (NOT SPECIFIED) [Suspect]
     Indication: ASTHMA
     Dosage: (2 DF BID RESPIRATORY (INHALATION))
     Route: 055
  3. VENTOLIN [Suspect]
     Indication: ASTHMA
     Dosage: (RESPIRATORY (INHALATION))
     Route: 055
  4. ATORVASTATIN CALCIUM [Suspect]
     Indication: HYPERCHOLESTEROLAEMIA
  5. DILTIAZEM HCL [Suspect]
     Dosage: (ORAL)
     Route: 048
  6. FERROUS SULFATE TAB [Suspect]
     Indication: IRON DEFICIENCY

REACTIONS (3)
  - EYE DISORDER [None]
  - EYE PENETRATION [None]
  - TRANSPLANT [None]
